FAERS Safety Report 7699128-2 (Version None)
Quarter: 2011Q3

REPORT INFORMATION
  Report Type: 
  Country: None (occurrence: None)
  Receive Date: 20110819
  Receipt Date: 20110812
  Transmission Date: 20111222
  Serious: Yes (Hospitalization, Other)
  Sender: FDA-Public Use
  Company Number: US-MERCK-1010USA01908

PATIENT
  Age: 64 Year
  Sex: Female
  Weight: 79 kg

DRUGS (9)
  1. VITAMIN D (UNSPECIFIED) [Concomitant]
     Route: 065
  2. FOSAMAX [Suspect]
     Indication: OSTEOPENIA
     Route: 048
     Dates: start: 20010901, end: 20071001
  3. ASCORBIC ACID [Concomitant]
     Route: 065
  4. FOSAMAX [Suspect]
     Route: 048
     Dates: start: 19970112, end: 20010901
  5. VITAMINS (UNSPECIFIED) [Concomitant]
     Route: 065
  6. FOSAMAX [Suspect]
     Indication: OSTEOPOROSIS
     Route: 048
     Dates: start: 20010901, end: 20071001
  7. CALCIUM (UNSPECIFIED) [Concomitant]
     Route: 065
  8. BUFFERIN [Concomitant]
     Route: 048
  9. FOSAMAX [Suspect]
     Route: 048
     Dates: start: 19970112, end: 20010901

REACTIONS (30)
  - ARTHROPATHY [None]
  - ARTERIOSCLEROSIS [None]
  - OSTEOPENIA [None]
  - ECCHYMOSIS [None]
  - HYPOAESTHESIA [None]
  - ARTHRALGIA [None]
  - MITRAL VALVE INCOMPETENCE [None]
  - ARTHRITIS INFECTIVE [None]
  - BONE DENSITY DECREASED [None]
  - DEVICE FAILURE [None]
  - PROCEDURAL HYPOTENSION [None]
  - OEDEMA PERIPHERAL [None]
  - DEEP VEIN THROMBOSIS [None]
  - COMPRESSION FRACTURE [None]
  - PULMONARY VALVE INCOMPETENCE [None]
  - DYSLIPIDAEMIA [None]
  - FEMUR FRACTURE [None]
  - POST PROCEDURAL HAEMORRHAGE [None]
  - SPONDYLOLISTHESIS [None]
  - STRESS FRACTURE [None]
  - TRICUSPID VALVE INCOMPETENCE [None]
  - INCISION SITE HAEMATOMA [None]
  - INTERVERTEBRAL DISC DEGENERATION [None]
  - UPPER LIMB FRACTURE [None]
  - KYPHOSIS [None]
  - PULMONARY OEDEMA [None]
  - HYPERTENSION [None]
  - SCOLIOSIS [None]
  - LEFT VENTRICULAR HYPERTROPHY [None]
  - DYSPEPSIA [None]
